FAERS Safety Report 14708336 (Version 1)
Quarter: 2018Q2

REPORT INFORMATION
  Report Type: Spontaneous
  Country: US (occurrence: US)
  Receive Date: 20180403
  Receipt Date: 20180403
  Transmission Date: 20180711
  Serious: Yes (Other)
  Sender: FDA-Public Use
  Company Number: US-AUROBINDO-AUR-APL-2018-017239

PATIENT
  Age: 73 Year
  Sex: Female

DRUGS (3)
  1. LISINOPRIL. [Suspect]
     Active Substance: LISINOPRIL
     Indication: PRODUCT USED FOR UNKNOWN INDICATION
  2. CHLORTALIDONE [Suspect]
     Active Substance: CHLORTHALIDONE
     Indication: PRODUCT USED FOR UNKNOWN INDICATION
  3. POLYETHYLENE GLYCOL [Suspect]
     Active Substance: POLYETHYLENE GLYCOLS
     Indication: COLONOSCOPY

REACTIONS (7)
  - Diarrhoea [Unknown]
  - Confusional state [Unknown]
  - Inappropriate antidiuretic hormone secretion [Unknown]
  - Seizure [Unknown]
  - Hyponatraemia [Unknown]
  - Vomiting [Unknown]
  - Disease progression [Unknown]
